FAERS Safety Report 8418442-6 (Version None)
Quarter: 2012Q2

REPORT INFORMATION
  Report Type: 
  Country: None (occurrence: None)
  Receive Date: 20120607
  Receipt Date: 20120525
  Transmission Date: 20120825
  Serious: Yes (Other)
  Sender: FDA-Public Use
  Company Number: CA-SANOFI-AVENTIS-2012SA037594

PATIENT
  Age: 69 Year
  Sex: Male

DRUGS (2)
  1. CLOPIDOGREL BISULFATE [Suspect]
     Route: 048
  2. CLOPIDOGREL BISULFATE [Suspect]
     Indication: STENT PLACEMENT
     Route: 048
     Dates: start: 20111101, end: 20120401

REACTIONS (2)
  - DISABILITY [None]
  - OESOPHAGEAL PERFORATION [None]
